FAERS Safety Report 21208106 (Version 1)
Quarter: 2022Q3

REPORT INFORMATION
  Report Type: Spontaneous
  Country: FR (occurrence: FR)
  Receive Date: 20220812
  Receipt Date: 20220812
  Transmission Date: 20221027
  Serious: Yes (Death)
  Sender: FDA-Public Use
  Company Number: FR-SERVIER-S22000064

PATIENT
  Age: 73 Year
  Sex: Male

DRUGS (2)
  1. LONSURF [Suspect]
     Active Substance: TIPIRACIL HYDROCHLORIDE\TRIFLURIDINE
     Indication: Colorectal cancer metastatic
     Dosage: 60 MG, BID
     Route: 048
     Dates: start: 20211227, end: 20211231
  2. LONSURF [Suspect]
     Active Substance: TIPIRACIL HYDROCHLORIDE\TRIFLURIDINE
     Dosage: 40 MG, BID
     Route: 048
     Dates: start: 20220101, end: 20220105

REACTIONS (3)
  - Vomiting [Not Recovered/Not Resolved]
  - Altered state of consciousness [Fatal]
  - Disease progression [Fatal]

NARRATIVE: CASE EVENT DATE: 20211228
